FAERS Safety Report 17160401 (Version 2)
Quarter: 2020Q1

REPORT INFORMATION
  Report Type: Report from Study
  Country: US (occurrence: US)
  Receive Date: 20191216
  Receipt Date: 20200218
  Transmission Date: 20200409
  Serious: Yes (Other)
  Sender: FDA-Public Use
  Company Number: US-BRISTOL-MYERS SQUIBB COMPANY-BMS-2019-117270

PATIENT
  Sex: Female

DRUGS (1)
  1. ABATACEPT [Suspect]
     Active Substance: ABATACEPT
     Indication: PRODUCT USED FOR UNKNOWN INDICATION
     Dosage: UNK
     Route: 065

REACTIONS (7)
  - Malaise [Unknown]
  - Drug ineffective [Unknown]
  - Aphthous ulcer [Unknown]
  - Fall [Unknown]
  - Accident [Unknown]
  - Upper limb fracture [Unknown]
  - Stomatitis [Unknown]

NARRATIVE: CASE EVENT DATE: 2019
